FAERS Safety Report 4539518-X (Version None)
Quarter: 2004Q4

REPORT INFORMATION
  Report Type: 
  Country: None (occurrence: None)
  Receive Date: 20041222
  Receipt Date: 20041210
  Transmission Date: 20050328
  Serious: Yes (Hospitalization)
  Sender: FDA-Public Use
  Company Number: 2004-BP-11390BP

PATIENT
  Age: 7 Year
  Sex: Female

DRUGS (1)
  1. CATAPRES [Suspect]
     Indication: ATTENTION DEFICIT/HYPERACTIVITY DISORDER
     Dosage: 0.1 MG (2.5 MG, 1 PATCH Q WEEK), TO
     Route: 061
     Dates: start: 20040916, end: 20041102

REACTIONS (7)
  - CIRCULATORY COLLAPSE [None]
  - FATIGUE [None]
  - HEADACHE [None]
  - PARAESTHESIA [None]
  - PHARMACEUTICAL PRODUCT COMPLAINT [None]
  - PULSE ABSENT [None]
  - RESPIRATORY DEPRESSION [None]
